FAERS Safety Report 5734669-6 (Version None)
Quarter: 2008Q2

REPORT INFORMATION
  Report Type: 
  Country: None (occurrence: None)
  Receive Date: 20080512
  Receipt Date: 20080502
  Transmission Date: 20081010
  Serious: Yes (Other)
  Sender: FDA-Public Use
  Company Number: US-ROCHE-552308

PATIENT
  Sex: Female
  Weight: 56.7 kg

DRUGS (6)
  1. BONIVA [Suspect]
     Indication: OSTEOPENIA
     Dosage: PATIENT REPORTED HAD BEEN RECEIVING THERAPY FOR TWO YEARS.
     Route: 065
     Dates: start: 20060101
  2. COSOPT [Concomitant]
     Indication: PROPHYLAXIS
     Dosage: FORMULATION REPORTED AS ^EYE DROPS^
  3. COSOPT [Concomitant]
     Dosage: FORMULATION REPORTED AS ^EYE DROPS^
  4. ALPHAGAN P [Concomitant]
     Indication: PROPHYLAXIS
     Dosage: FORMULATION REPORTED AS ^EYE DROPS^
  5. COMBIPATCH [Concomitant]
     Indication: HORMONE REPLACEMENT THERAPY
     Route: 062
  6. COMBIPATCH [Concomitant]
     Route: 062

REACTIONS (2)
  - OPEN ANGLE GLAUCOMA [None]
  - OPTIC NERVE DISORDER [None]
